FAERS Safety Report 20878592 (Version 1)
Quarter: 2022Q2

REPORT INFORMATION
  Report Type: Spontaneous
  Country: US (occurrence: None)
  Receive Date: 20220526
  Receipt Date: 20220526
  Transmission Date: 20220720
  Serious: Yes (Death)
  Sender: FDA-Public Use
  Company Number: None

PATIENT
  Age: 63 Year
  Sex: Male

DRUGS (16)
  1. XALKORI [Suspect]
     Active Substance: CRIZOTINIB
     Indication: Lung carcinoma cell type unspecified stage 0
     Dosage: TAKE 1 CAPSULE (250 MG) BY MOUTH 2 TIMES DAILY.?
     Route: 048
     Dates: start: 20220511
  2. ALOGLIPTIN TAB [Concomitant]
  3. APAP/CODEINE TAB [Concomitant]
  4. DEXAMETHASON TAB [Concomitant]
  5. DIPHENHYDRAM CAP [Concomitant]
  6. FOLIC ACID TAB [Concomitant]
  7. HYDROCO/APAP TAB [Concomitant]
  8. MEGESTROL AC SUS [Concomitant]
  9. MEGESTROL ACETATE [Concomitant]
     Active Substance: MEGESTROL ACETATE
  10. METFORMIN TAB [Concomitant]
  11. ONDANSETRON TAB [Concomitant]
  12. ROSUVASTATIN [Concomitant]
     Active Substance: ROSUVASTATIN
  13. VITAMIN C TAB [Concomitant]
  14. XARELTO TAB [Concomitant]
  15. ZINC TAB [Concomitant]
  16. ZOLPIDEM TAB [Concomitant]

REACTIONS (1)
  - Death [None]

NARRATIVE: CASE EVENT DATE: 20220512
